FAERS Safety Report 26044781 (Version 1)
Quarter: 2025Q4

REPORT INFORMATION
  Report Type: Spontaneous
  Country: GB (occurrence: GB)
  Receive Date: 20251114
  Receipt Date: 20251114
  Transmission Date: 20260117
  Serious: Yes (Other)
  Sender: STRIDES
  Company Number: GB-STRIDES ARCOLAB LIMITED-2025SP014116

PATIENT
  Age: 7 Decade
  Sex: Male

DRUGS (19)
  1. OXYCODONE [Suspect]
     Active Substance: OXYCODONE
     Indication: Hip fracture
     Dosage: 20 MILLIGRAM IMMEDIATE RELEASE STATS
     Route: 065
  2. OXYCODONE [Suspect]
     Active Substance: OXYCODONE
     Indication: Fracture pain
     Dosage: UNK, RESTARTED AND REDUCED DOSE
     Route: 065
  3. MORPHINE SULFATE [Suspect]
     Active Substance: MORPHINE SULFATE
     Indication: Hip fracture
     Dosage: 300-340 MG  , QD
     Route: 048
  4. MORPHINE SULFATE [Suspect]
     Active Substance: MORPHINE SULFATE
     Indication: Fracture pain
     Dosage: UNK REDUCED DOSE
     Route: 048
  5. PREGABALIN [Suspect]
     Active Substance: PREGABALIN
     Indication: Neuralgia
     Dosage: UNK
     Route: 065
  6. OXYCODONE [Suspect]
     Active Substance: OXYCODONE
     Indication: Hip fracture
     Dosage: 30 MILLIGRAM, BID MODIFIED RELEASE
     Route: 048
  7. OXYCODONE [Suspect]
     Active Substance: OXYCODONE
     Indication: Fracture pain
     Dosage: 80 MILLIGRAM, BID MODIFIED RELEASE
     Route: 048
  8. OXYCODONE [Suspect]
     Active Substance: OXYCODONE
     Dosage: UNK REDUCED DOSE
     Route: 048
  9. FENTANYL [Suspect]
     Active Substance: FENTANYL
     Indication: Hip fracture
     Dosage: UNK, STATS
     Route: 065
  10. FENTANYL [Suspect]
     Active Substance: FENTANYL
     Indication: Fracture pain
  11. ALFENTANIL [Suspect]
     Active Substance: ALFENTANIL
     Indication: Hip fracture
     Dosage: 4 MILLIGRAM INFUSION
     Route: 058
  12. ALFENTANIL [Suspect]
     Active Substance: ALFENTANIL
     Indication: Fracture pain
     Dosage: 8 MILLIGRAM INFUSION
     Route: 058
  13. ALFENTANIL [Suspect]
     Active Substance: ALFENTANIL
     Dosage: 10 MILLIGRAM INFUSION
     Route: 058
  14. ALFENTANIL [Suspect]
     Active Substance: ALFENTANIL
     Dosage: 4 MILLIGRAM INFUSION
     Route: 058
  15. ALFENTANIL [Suspect]
     Active Substance: ALFENTANIL
     Dosage: UNK REDUCED DOSE
     Route: 058
  16. ACETAMINOPHEN [Suspect]
     Active Substance: ACETAMINOPHEN
     Indication: Neuralgia
     Dosage: 1 GRAM, FOUR TIMES A DAY
     Route: 048
  17. DULOXETINE [Suspect]
     Active Substance: DULOXETINE
     Indication: Neuralgia
     Dosage: 60 MILLIGRAM, QD
     Route: 048
  18. MIDAZOLAM [Concomitant]
     Active Substance: MIDAZOLAM
     Indication: Neuralgia
     Dosage: 5 MILLIGRAM
     Route: 065
  19. NITROUS OXIDE\OXYGEN [Concomitant]
     Active Substance: NITROUS OXIDE\OXYGEN
     Indication: Analgesic therapy
     Dosage: UNK
     Route: 065

REACTIONS (6)
  - Hallucination [Recovering/Resolving]
  - Toxicity to various agents [Recovering/Resolving]
  - Drug ineffective [Unknown]
  - Myoclonus [Recovering/Resolving]
  - Confusional state [Recovering/Resolving]
  - Drug intolerance [Unknown]
